FAERS Safety Report 23888463 (Version 2)
Quarter: 2024Q3

REPORT INFORMATION
  Report Type: Spontaneous
  Country: RO (occurrence: RO)
  Receive Date: 20240523
  Receipt Date: 20240729
  Transmission Date: 20241016
  Serious: Yes (Death, Life-Threatening, Other)
  Sender: NOVARTIS
  Company Number: RO-Accord-424808

PATIENT
  Age: 63 Year
  Sex: Female

DRUGS (12)
  1. LETROZOLE [Suspect]
     Active Substance: LETROZOLE
     Indication: Metastasis
     Dosage: 2.5 MG, QD
     Route: 065
     Dates: start: 201808, end: 201905
  2. LETROZOLE [Suspect]
     Active Substance: LETROZOLE
     Indication: Metastasis
     Dosage: 2.5 MG, QD
     Route: 065
     Dates: start: 201808, end: 202203
  3. LETROZOLE [Suspect]
     Active Substance: LETROZOLE
     Dosage: 2.5 MG, QD
     Route: 065
     Dates: start: 202206
  4. PALBOCICLIB [Suspect]
     Active Substance: PALBOCICLIB
     Indication: Metastasis
     Dosage: UNK
     Route: 065
     Dates: start: 202206
  5. PALBOCICLIB [Suspect]
     Active Substance: PALBOCICLIB
     Indication: Metastasis
     Dosage: 100 MG, QD, (21 DAYS IN A 28 DAY CYCLE)
     Route: 065
     Dates: start: 201808, end: 202203
  6. PALBOCICLIB [Suspect]
     Active Substance: PALBOCICLIB
     Dosage: 125 MG, QD, (21 DAYS IN A 28 DAY CYCLE)
     Route: 065
     Dates: start: 201808, end: 201905
  7. PACLITAXEL [Suspect]
     Active Substance: PACLITAXEL
     Indication: Breast cancer
     Dosage: 90 MG/M2, Q4W, (90 MG/M2 DAY 1,8,15, Q4W  )
     Route: 065
  8. ZOLEDRONIC ACID [Suspect]
     Active Substance: ZOLEDRONIC ACID
     Indication: Metastasis
     Dosage: 4 MG, Q3W
     Route: 065
  9. PEGFILGRASTIM [Suspect]
     Active Substance: PEGFILGRASTIM
     Indication: Prophylaxis
     Dosage: UNK
     Route: 065
  10. ALPELISIB [Suspect]
     Active Substance: ALPELISIB
     Indication: Metastasis
     Dosage: UNK
     Route: 065
  11. FULVESTRANT [Suspect]
     Active Substance: FULVESTRANT
     Indication: Metastasis
     Dosage: UNK
     Route: 065
  12. DOCETAXEL [Suspect]
     Active Substance: DOCETAXEL\DOCETAXEL ANHYDROUS
     Indication: Metastasis
     Dosage: 75 MG, Q3W
     Route: 065
     Dates: start: 201802, end: 201808

REACTIONS (5)
  - Death [Fatal]
  - Febrile neutropenia [Unknown]
  - Thrombocytopenia [Recovered/Resolved]
  - Neuropathy peripheral [Unknown]
  - Disease progression [Unknown]

NARRATIVE: CASE EVENT DATE: 20230601
